FAERS Safety Report 18889733 (Version 2)
Quarter: 2021Q1

REPORT INFORMATION
  Report Type: Spontaneous
  Country: GB (occurrence: GB)
  Receive Date: 20210213
  Receipt Date: 20210227
  Transmission Date: 20210420
  Serious: Yes (Other)
  Sender: FDA-Public Use
  Company Number: GB-TAKEDA-2021TJP003789

PATIENT
  Age: 67 Year
  Sex: Male

DRUGS (2)
  1. NUCALA [Suspect]
     Active Substance: MEPOLIZUMAB
     Indication: PRODUCT USED FOR UNKNOWN INDICATION
     Dosage: 100 MILLIGRAM, Q4WEEKS
     Route: 058
  2. LANSOPRAZOLE. [Suspect]
     Active Substance: LANSOPRAZOLE
     Indication: PRODUCT USED FOR UNKNOWN INDICATION
     Dosage: UNK
     Route: 065

REACTIONS (12)
  - Lower respiratory tract infection [Unknown]
  - Pain [Unknown]
  - Gastrooesophageal reflux disease [Unknown]
  - Foreign body in throat [Unknown]
  - Chest discomfort [Unknown]
  - Cough [Unknown]
  - Atrial fibrillation [Unknown]
  - Angina pectoris [Unknown]
  - Dyspnoea [Unknown]
  - Insomnia [Unknown]
  - Stress [Unknown]
  - Chest pain [Unknown]
